FAERS Safety Report 22067830 (Version 1)
Quarter: 2023Q1

REPORT INFORMATION
  Report Type: Spontaneous
  Country: JP (occurrence: None)
  Receive Date: 20230307
  Receipt Date: 20230307
  Transmission Date: 20230418
  Serious: Yes (Other)
  Sender: FDA-Public Use
  Company Number: JP-ADIENNEP-2023AD000070

PATIENT
  Sex: Female

DRUGS (2)
  1. THIOTEPA [Suspect]
     Active Substance: THIOTEPA
     Indication: Autologous haematopoietic stem cell transplant
     Dosage: 5 MG/KG ON DAYS - 4 AND - 3
  2. BUSULFAN [Suspect]
     Active Substance: BUSULFAN
     Indication: Autologous haematopoietic stem cell transplant
     Dosage: 3.2 MG/KG ON DAYS - 8 TO - 5

REACTIONS (3)
  - Engraft failure [Recovered/Resolved]
  - Gastrointestinal haemorrhage [Unknown]
  - Mucosal disorder [Unknown]
